FAERS Safety Report 13543101 (Version 1)
Quarter: 2017Q2

REPORT INFORMATION
  Report Type: Spontaneous
  Country: US (occurrence: US)
  Receive Date: 20170512
  Receipt Date: 20170512
  Transmission Date: 20170830
  Serious: Yes (Life-Threatening, Other)
  Sender: FDA-Public Use
  Company Number: None

PATIENT
  Age: 30 Year
  Sex: Female
  Weight: 49.05 kg

DRUGS (4)
  1. NUX VOMICA [Concomitant]
  2. BOTULISM TOXIN A [Suspect]
     Active Substance: BOTULINUM TOXIN TYPE A
     Indication: SKIN COSMETIC PROCEDURE
     Route: 058
     Dates: start: 20170201
  3. D  HIST [Concomitant]
  4. ATIVAN [Concomitant]
     Active Substance: LORAZEPAM

REACTIONS (12)
  - Throat tightness [None]
  - Weight decreased [None]
  - Hypoglycaemia [None]
  - Feeling abnormal [None]
  - Panic attack [None]
  - Headache [None]
  - Sinus disorder [None]
  - Asthenopia [None]
  - Dizziness [None]
  - Dehydration [None]
  - Hypersensitivity [None]
  - Toxicity to various agents [None]

NARRATIVE: CASE EVENT DATE: 20170201
